FAERS Safety Report 5391774-4 (Version None)
Quarter: 2007Q3

REPORT INFORMATION
  Report Type: 
  Country: None (occurrence: None)
  Receive Date: 20070719
  Receipt Date: 20070710
  Transmission Date: 20080115
  Serious: Yes (Other)
  Sender: FDA-Public Use
  Company Number: FR-ABBOTT-07P-056-0372562-00

PATIENT
  Sex: Female

DRUGS (2)
  1. DEPAKENE [Suspect]
     Indication: EPILEPSY
     Route: 048
     Dates: start: 20070123, end: 20070504
  2. DEPAKENE [Suspect]
     Route: 048
     Dates: start: 20070505

REACTIONS (4)
  - DRUG LEVEL DECREASED [None]
  - EPILEPSY [None]
  - IRRITABILITY [None]
  - SPEECH DISORDER [None]
